FAERS Safety Report 7354106-8 (Version None)
Quarter: 2011Q1

REPORT INFORMATION
  Report Type: 
  Country: None (occurrence: None)
  Receive Date: 20110315
  Receipt Date: 20101129
  Transmission Date: 20110831
  Serious: Yes (Hospitalization)
  Sender: FDA-Public Use
  Company Number: US-GILEAD-2010-0028443

PATIENT
  Age: 45 Year
  Sex: Male
  Weight: 82.9 kg

DRUGS (6)
  1. ALPROSTADIL [Concomitant]
     Dates: start: 20100321
  2. SIMETHICONE [Concomitant]
  3. EMTRICITABINE/TENOFOVIR DISOPROXIL FUMARATE [Suspect]
     Indication: HIV INFECTION
     Route: 048
     Dates: start: 20090813, end: 20100412
  4. TRAZODONE [Concomitant]
  5. CETIRIZINE [Concomitant]
  6. ALLERGY SERUM INJECTIONS [Concomitant]

REACTIONS (7)
  - CONGESTIVE CARDIOMYOPATHY [None]
  - ASPARTATE AMINOTRANSFERASE INCREASED [None]
  - INSOMNIA [None]
  - BLOOD ALKALINE PHOSPHATASE INCREASED [None]
  - CARDIAC FAILURE CONGESTIVE [None]
  - ALANINE AMINOTRANSFERASE INCREASED [None]
  - ANXIETY [None]
